FAERS Safety Report 8920563 (Version 1)
Quarter: 2012Q4

REPORT INFORMATION
  Report Type: Report from Study
  Country: US (occurrence: US)
  Receive Date: 20121121
  Receipt Date: 20121121
  Transmission Date: 20130627
  Serious: Yes (Hospitalization)
  Sender: FDA-Public Use
  Company Number: US-ABBOTT-12P-163-1008257-00

PATIENT
  Age: 76 None
  Sex: Male
  Weight: 136.2 kg

DRUGS (16)
  1. HUMIRA [Suspect]
     Indication: PSORIASIS
     Dates: start: 2010
  2. METFORMIN [Concomitant]
     Indication: DIABETES MELLITUS
  3. GLYBURIDE [Concomitant]
     Indication: DIABETES MELLITUS
  4. SIMVASTATIN [Concomitant]
     Indication: BLOOD CHOLESTEROL INCREASED
  5. NIACIN [Concomitant]
     Indication: BLOOD CHOLESTEROL INCREASED
  6. POTASSIUM [Concomitant]
     Indication: ELECTROLYTE SUBSTITUTION THERAPY
  7. METOPROLOL [Concomitant]
     Indication: HYPERTENSION
  8. AMIODARONE [Concomitant]
     Indication: HEART RATE IRREGULAR
  9. ASPIRIN [Concomitant]
     Indication: PROPHYLAXIS
  10. ALLOPURINOL [Concomitant]
     Indication: GOUT
  11. TAMSULOSIN [Concomitant]
     Indication: PROSTATOMEGALY
  12. LEVOTHYROXINE [Concomitant]
     Indication: HYPOTHYROIDISM
  13. PANTOPRAZOLE [Concomitant]
     Indication: PROPHYLAXIS
  14. PANTOPRAZOLE [Concomitant]
     Indication: GASTRIC DISORDER
  15. MULTIVITAMIN [Concomitant]
     Indication: VITAMIN SUPPLEMENTATION
  16. DOXYCYCLINE [Concomitant]
     Indication: ROSACEA

REACTIONS (10)
  - Oxygen saturation decreased [Recovered/Resolved]
  - Sepsis [Recovered/Resolved]
  - Dyspnoea [Recovered/Resolved]
  - Pyrexia [Recovered/Resolved]
  - Chills [Recovered/Resolved]
  - Cellulitis [Not Recovered/Not Resolved]
  - Blister [Recovered/Resolved]
  - Oedema peripheral [Not Recovered/Not Resolved]
  - Skin ulcer [Recovered/Resolved]
  - Skin discolouration [Not Recovered/Not Resolved]
